FAERS Safety Report 5078796-8 (Version None)
Quarter: 2006Q3

REPORT INFORMATION
  Report Type: 
  Country: None (occurrence: None)
  Receive Date: 20060809
  Receipt Date: 20060801
  Transmission Date: 20061208
  Serious: Yes (Hospitalization)
  Sender: FDA-Public Use
  Company Number: 2005BI020734

PATIENT
  Age: 58 Year
  Sex: Male
  Weight: 58.0604 kg

DRUGS (6)
  1. AVONEX [Suspect]
     Indication: MULTIPLE SCLEROSIS
     Dosage: 30 UG;QW;IM
     Route: 030
     Dates: start: 19980801, end: 20030801
  2. AVONEX [Suspect]
     Indication: MULTIPLE SCLEROSIS
     Dosage: 30 UG;QW;IM
     Route: 030
     Dates: start: 20030801
  3. DILANTIN [Concomitant]
  4. NEURONTIN [Concomitant]
  5. XANAX [Concomitant]
  6. BACLOFEN [Concomitant]

REACTIONS (4)
  - BENIGN PROSTATIC HYPERPLASIA [None]
  - INTERVERTEBRAL DISC PROTRUSION [None]
  - OESOPHAGEAL SPASM [None]
  - PAIN IN EXTREMITY [None]
